FAERS Safety Report 12453314 (Version 1)
Quarter: 2016Q2

REPORT INFORMATION
  Report Type: Spontaneous
  Country: JP (occurrence: JP)
  Receive Date: 20160609
  Receipt Date: 20160609
  Transmission Date: 20160815
  Serious: Yes (Life-Threatening, Hospitalization, Other)
  Sender: FDA-Public Use
  Company Number: JP-BRISTOL-MYERS SQUIBB COMPANY-BMS-2015-089415

PATIENT
  Age: 68 Year
  Sex: Male
  Weight: 60 kg

DRUGS (15)
  1. CISPLATIN. [Concomitant]
     Active Substance: CISPLATIN
     Indication: HEAD AND NECK CANCER
     Dosage: UNK UNK, UNKNOWN
     Route: 042
     Dates: start: 20150316, end: 20150724
  2. CISPLATIN. [Concomitant]
     Active Substance: CISPLATIN
     Indication: LARYNGEAL CANCER
     Dosage: UNK
     Dates: start: 20150316, end: 20150724
  3. HIBON [Concomitant]
     Active Substance: RIBOFLAVIN
     Indication: STOMATITIS
     Dosage: 20 MG, QD
     Route: 048
     Dates: start: 20150427
  4. YODEL [Concomitant]
     Active Substance: SENNA LEAF
     Indication: CONSTIPATION
     Dosage: 2 DF, UNKNOWN
     Route: 048
     Dates: start: 20151009, end: 20151102
  5. LYRICA [Suspect]
     Active Substance: PREGABALIN
     Indication: NEURALGIA
     Dosage: 75 MG, BID
     Route: 048
     Dates: start: 20151009, end: 20151025
  6. CARBOCISTEINE [Concomitant]
     Active Substance: CARBOCYSTEINE
     Indication: PRODUCTIVE COUGH
     Dosage: 500 MG, TID
     Route: 048
     Dates: start: 20151026
  7. DIPHENHYDRAMINE. [Concomitant]
     Active Substance: DIPHENHYDRAMINE
     Indication: PREMEDICATION
     Dosage: 50 MG, WEEKLY (1/W)
     Route: 048
     Dates: start: 20150316, end: 20150316
  8. CETUXIMAB [Suspect]
     Active Substance: CETUXIMAB
     Indication: LARYNGEAL CANCER
     Dosage: 250 MG/M2, WEEKLY (1/W)
     Route: 042
     Dates: start: 20150316, end: 20150316
  9. 5-FU                               /00098801/ [Concomitant]
     Active Substance: FLUOROURACIL
     Indication: LARYNGEAL CANCER
     Dosage: UNK UNK, UNKNOWN
     Route: 042
     Dates: start: 20150316, end: 20150724
  10. THYRADIN S [Concomitant]
     Active Substance: LEVOTHYROXINE SODIUM
     Indication: HYPOTHYROIDISM
     Dosage: 100 UG, QD
     Route: 048
     Dates: start: 20150204
  11. PACLITAXEL. [Concomitant]
     Active Substance: PACLITAXEL
     Indication: LARYNGEAL CANCER
     Dosage: 80 MG/M2, WEEKLY (1/W)
     Route: 042
     Dates: start: 20150925, end: 20151016
  12. 5-FU                               /00098801/ [Concomitant]
     Active Substance: FLUOROURACIL
     Indication: HEAD AND NECK CANCER
     Route: 041
  13. MINOMYCIN [Concomitant]
     Active Substance: MINOCYCLINE HYDROCHLORIDE
     Indication: CUTANEOUS SYMPTOM
     Dosage: 50 MG, BID
     Route: 048
     Dates: start: 20150401
  14. PACLITAXEL. [Concomitant]
     Active Substance: PACLITAXEL
     Indication: HEAD AND NECK CANCER
     Dosage: UNK UNK, UNKNOWN
     Route: 042
  15. MAGMITT [Concomitant]
     Active Substance: MAGNESIUM OXIDE
     Indication: CONSTIPATION
     Dosage: 660 MG, TID
     Route: 048
     Dates: start: 20150320

REACTIONS (4)
  - Herpes zoster [Recovering/Resolving]
  - Interstitial lung disease [Recovered/Resolved]
  - Hyponatraemia [Unknown]
  - Neutrophil count decreased [Unknown]

NARRATIVE: CASE EVENT DATE: 20151013
